FAERS Safety Report 16467631 (Version 1)
Quarter: 2019Q2

REPORT INFORMATION
  Report Type: Spontaneous
  Country: US (occurrence: US)
  Receive Date: 20190624
  Receipt Date: 20190624
  Transmission Date: 20190711
  Serious: Yes (Hospitalization)
  Sender: FDA-Public Use
  Company Number: US-PHARMALEX-2069503

PATIENT
  Sex: Female

DRUGS (1)
  1. EXPAREL [Suspect]
     Active Substance: BUPIVACAINE
     Indication: NERVE BLOCK
     Route: 065
     Dates: start: 20190516, end: 20190516

REACTIONS (3)
  - Paralysis [Recovered/Resolved]
  - Myasthenia gravis crisis [Recovered/Resolved]
  - Cholinergic syndrome [Recovered/Resolved]
